FAERS Safety Report 16305241 (Version 1)
Quarter: 2019Q2

REPORT INFORMATION
  Report Type: Spontaneous
  Country: US (occurrence: US)
  Receive Date: 20190511
  Receipt Date: 20190511
  Transmission Date: 20190711
  Serious: Yes (Life-Threatening, Hospitalization)
  Sender: FDA-Public Use
  Company Number: None

PATIENT
  Age: 48 Year
  Sex: Female
  Weight: 91.9 kg

DRUGS (1)
  1. EMPAGLIFLOZIN [Suspect]
     Active Substance: EMPAGLIFLOZIN
     Indication: DIABETES MELLITUS
     Route: 048
     Dates: start: 20190413, end: 20190507

REACTIONS (9)
  - Chills [None]
  - Necrotising fasciitis [None]
  - Pyrexia [None]
  - Abdominal pain [None]
  - Asthenia [None]
  - Dizziness [None]
  - Nausea [None]
  - Vomiting [None]
  - Sepsis [None]

NARRATIVE: CASE EVENT DATE: 20190508
